FAERS Safety Report 9456451 (Version 2)
Quarter: 2013Q4

REPORT INFORMATION
  Report Type: Spontaneous
  Country: US (occurrence: US)
  Receive Date: 20130813
  Receipt Date: 20131018
  Transmission Date: 20140711
  Serious: Yes (Hospitalization)
  Sender: FDA-Public Use
  Company Number: US-BRISTOL-MYERS SQUIBB COMPANY-19163369

PATIENT
  Age: 51 Year
  Sex: Male
  Weight: 80.27 kg

DRUGS (7)
  1. ORENCIA FOR INJ [Suspect]
     Indication: RHEUMATOID ARTHRITIS
     Dosage: 2ND DOSE:25JUN13?3RD DOSE:09JUL13
     Route: 042
     Dates: start: 20130611
  2. METHOTREXATE [Concomitant]
     Route: 048
  3. LEUCOVORIN [Concomitant]
  4. PERCOCET [Concomitant]
     Dosage: 1DF:5/325 UNIT NOS
  5. PREDNISONE [Concomitant]
  6. RISPERIDONE [Concomitant]
  7. FOLIC ACID [Concomitant]
     Route: 048

REACTIONS (5)
  - Transient ischaemic attack [Unknown]
  - Headache [Unknown]
  - Nausea [Unknown]
  - Vomiting [Unknown]
  - Dizziness [Unknown]
